FAERS Safety Report 7227128-5 (Version None)
Quarter: 2011Q1

REPORT INFORMATION
  Report Type: 
  Country: None (occurrence: None)
  Receive Date: 20110114
  Receipt Date: 20110106
  Transmission Date: 20110831
  Serious: Yes (Other)
  Sender: FDA-Public Use
  Company Number: US-PFIZER INC-2010174409

PATIENT
  Sex: Female

DRUGS (17)
  1. NEURONTIN [Suspect]
     Dosage: UNK
  2. CYMBALTA [Concomitant]
     Dosage: UNK
  3. METFORMIN [Concomitant]
     Dosage: UNK
  4. MULTI-VITAMINS [Concomitant]
     Dosage: UNK
  5. PROPRANOLOL [Concomitant]
     Dosage: UNK
  6. BOTOX [Concomitant]
     Dosage: UNK
  7. BENADRYL [Concomitant]
     Dosage: UNK
  8. CLONAZEPAM [Concomitant]
     Dosage: UNK
  9. GEMFIBROZIL [Concomitant]
     Dosage: UNK
  10. ZANAFLEX [Concomitant]
     Dosage: UNK
  11. CLARITIN [Concomitant]
     Dosage: UNK
  12. LAMOTRIGINE [Suspect]
     Indication: BIPOLAR DISORDER
     Dosage: 300 MG, 1X/DAY
     Dates: start: 20081008
  13. LAMICTAL [Suspect]
     Indication: BIPOLAR DISORDER
     Dosage: 300 MG, 1X/DAY
     Dates: start: 20081008
  14. SIMVASTATIN [Concomitant]
     Dosage: UNK
  15. SUDAFED 12 HOUR [Concomitant]
     Dosage: UNK
  16. EXCEDRIN (MIGRAINE) [Concomitant]
  17. SYNTHROID [Concomitant]
     Dosage: UNK

REACTIONS (9)
  - PARAESTHESIA [None]
  - LOSS OF CONSCIOUSNESS [None]
  - SPONDYLITIS [None]
  - AGITATION [None]
  - AMNESIA [None]
  - NIGHTMARE [None]
  - DISORIENTATION [None]
  - CLAUSTROPHOBIA [None]
  - PAIN [None]
